FAERS Safety Report 7350638-7 (Version None)
Quarter: 2011Q1

REPORT INFORMATION
  Report Type: 
  Country: None (occurrence: None)
  Receive Date: 20110314
  Receipt Date: 20100921
  Transmission Date: 20110831
  Serious: Yes (Hospitalization)
  Sender: FDA-Public Use
  Company Number: US-BAYER-200944114NA

PATIENT
  Sex: Female
  Weight: 77.959 kg

DRUGS (4)
  1. BUPROPION HCL [Concomitant]
     Indication: DEPRESSION
     Route: 048
  2. YAZ [Suspect]
     Indication: ACNE
     Dosage: UNK
     Route: 048
  3. YASMIN [Suspect]
     Indication: ACNE
  4. YASMIN [Suspect]
     Indication: CONTRACEPTION
     Dosage: UNK
     Route: 048
     Dates: start: 20021101, end: 20030201

REACTIONS (4)
  - ABDOMINAL PAIN [None]
  - CHOLECYSTITIS CHRONIC [None]
  - CHOLELITHIASIS [None]
  - PULMONARY EMBOLISM [None]
